FAERS Safety Report 8136288-3 (Version None)
Quarter: 2012Q1

REPORT INFORMATION
  Report Type: 
  Country: None (occurrence: None)
  Receive Date: 20120214
  Receipt Date: 20120202
  Transmission Date: 20120608
  Serious: Yes (Hospitalization)
  Sender: FDA-Public Use
  Company Number: CH-MILLENNIUM PHARMACEUTICALS, INC.-2012-00742

PATIENT

DRUGS (19)
  1. METOPROLOL TARTRATE AND HYDROCHLOROTHIAZIDE [Concomitant]
     Indication: HYPERTENSION
     Dosage: 100 UNK, UNK
  2. ROCEPHIN [Concomitant]
     Indication: INFECTION
     Dosage: 2 G, UNK
     Route: 042
     Dates: start: 20111103, end: 20111110
  3. ZYLORIC                            /00003301/ [Concomitant]
     Indication: PROPHYLAXIS
     Dosage: 150 MG, UNK
     Route: 048
     Dates: start: 20111106, end: 20111107
  4. VALTREX [Concomitant]
     Indication: PROPHYLAXIS
     Dosage: 500 MG, UNK
     Route: 048
     Dates: start: 20111105
  5. LAXOBERON [Concomitant]
     Indication: PROPHYLAXIS
     Dosage: 20 GTT, UNK
     Route: 048
     Dates: start: 20111022
  6. TORSEMIDE [Concomitant]
     Indication: HYPERTENSION
     Dosage: 10 MG, UNK
     Route: 048
     Dates: start: 20111115, end: 20111118
  7. DEXAMETHASONE [Concomitant]
     Indication: MULTIPLE MYELOMA
     Dosage: 40 MG, UNK
     Route: 048
     Dates: start: 20111018, end: 20111119
  8. DAFALGAN                           /00020001/ [Concomitant]
     Indication: PATHOLOGICAL FRACTURE
     Dosage: 1 G, UNK
     Route: 048
     Dates: start: 20111014
  9. METOPROLOL SUCCINATE [Concomitant]
     Indication: HYPERTENSION
     Dosage: 100 MG, UNK
  10. LISTRIL [Concomitant]
     Indication: HYPERTENSION
     Dosage: 20 MG, UNK
     Route: 048
     Dates: start: 20111014
  11. TAZOBACTAM [Concomitant]
     Indication: INFECTION
     Dosage: 4.5 G, UNK
     Route: 042
  12. VELCADE [Suspect]
     Indication: MULTIPLE MYELOMA
     Dosage: 2.6 MG, UNK
     Route: 058
     Dates: start: 20111018, end: 20111118
  13. BUPRENORPHINE HCL [Suspect]
     Indication: HUMERUS FRACTURE
     Dosage: 0.4 MG, UNK
     Route: 048
     Dates: start: 20111019
  14. THALIDOMIDE [Suspect]
     Indication: MULTIPLE MYELOMA
     Dosage: 200 MG, CYCLIC
     Route: 048
     Dates: start: 20111026, end: 20111120
  15. BUPRENORPHINE [Suspect]
     Indication: HUMERUS FRACTURE
     Dosage: 10080 UG, UNK
     Route: 062
     Dates: start: 20111024
  16. SORTIS                             /01326101/ [Concomitant]
     Indication: HYPERCHOLESTEROLAEMIA
     Dosage: 20 MG, UNK
     Route: 048
     Dates: start: 20111014, end: 20111118
  17. SIMCORA [Concomitant]
     Indication: HYPERCHOLESTEROLAEMIA
     Dosage: 20 MG, UNK
     Route: 048
     Dates: start: 20111014
  18. TAMSULOSIN-MEPHA [Concomitant]
     Indication: BENIGN PROSTATIC HYPERPLASIA
     Dosage: 400 UG, UNK
     Route: 048
  19. NORVASC [Concomitant]
     Indication: HYPERTENSION
     Dosage: 10 MG, UNK
     Route: 048
     Dates: start: 20111021

REACTIONS (5)
  - OFF LABEL USE [None]
  - IMPAIRED GASTRIC EMPTYING [None]
  - CONSTIPATION [None]
  - POLYNEUROPATHY [None]
  - ILEUS PARALYTIC [None]
